FAERS Safety Report 10185532 (Version 1)
Quarter: 2014Q2

REPORT INFORMATION
  Report Type: Spontaneous
  Country: US (occurrence: US)
  Receive Date: 20140521
  Receipt Date: 20140521
  Transmission Date: 20141212
  Serious: No
  Sender: FDA-Public Use
  Company Number: US-PFIZER INC-2014137920

PATIENT
  Age: 14 Year
  Sex: Female

DRUGS (4)
  1. GENOTROPIN MQ [Suspect]
     Indication: BODY HEIGHT BELOW NORMAL
     Dosage: 2 MG, DAILY
     Route: 058
     Dates: start: 201303
  2. HUMIRA [Concomitant]
     Dosage: UNK
  3. CALCIUM [Concomitant]
     Dosage: 500, UNK
  4. VITAMIN D [Concomitant]
     Dosage: UNK

REACTIONS (1)
  - Injection site pain [Unknown]
